FAERS Safety Report 14394433 (Version 1)
Quarter: 2018Q1

REPORT INFORMATION
  Report Type: Spontaneous
  Country: US (occurrence: US)
  Receive Date: 20180116
  Receipt Date: 20180116
  Transmission Date: 20180509
  Serious: No
  Sender: FDA-Public Use
  Company Number: US-REGENERON PHARMACEUTICALS, INC.-2017-25175

PATIENT

DRUGS (4)
  1. EYLEA [Suspect]
     Active Substance: AFLIBERCEPT
     Indication: MACULAR DYSTROPHY CONGENITAL
     Dosage: 2 MG, OU, EVERY 5-6WEEKS, BOTH EYES
     Route: 031
     Dates: start: 20170614
  2. EYLEA [Suspect]
     Active Substance: AFLIBERCEPT
     Dosage: 2 MG, OU, EVERY 5-6WEEKS, LAST DOSE, BOTH EYES
     Route: 031
     Dates: start: 20171005, end: 20171005
  3. LISINOPRIL. [Concomitant]
     Active Substance: LISINOPRIL
     Indication: PRODUCT USED FOR UNKNOWN INDICATION
     Dosage: 20 MG, UNK
  4. EYLEA [Suspect]
     Active Substance: AFLIBERCEPT
     Dosage: 2 MG, OU, EVERY 5-6WEEKS, BOTH EYES
     Route: 031
     Dates: start: 20170831, end: 20170831

REACTIONS (1)
  - Off label use [Not Recovered/Not Resolved]

NARRATIVE: CASE EVENT DATE: 20170614
